FAERS Safety Report 21393578 (Version 2)
Quarter: 2023Q2

REPORT INFORMATION
  Report Type: Spontaneous
  Country: US (occurrence: US)
  Receive Date: 20220929
  Receipt Date: 20230418
  Transmission Date: 20230721
  Serious: Yes (Death, Other)
  Sender: FDA-Public Use
  Company Number: US-BRISTOL-MYERS SQUIBB COMPANY-2022-112848

PATIENT
  Age: 73 Year
  Sex: Male
  Weight: 79.3 kg

DRUGS (1)
  1. LENALIDOMIDE [Suspect]
     Active Substance: LENALIDOMIDE
     Indication: Mantle cell lymphoma
     Dosage: 15MG DAILY FOR DAYS 1-21, OFF FOR 7 DAYS
     Route: 048
     Dates: start: 20201007, end: 20220119

REACTIONS (1)
  - Malignant neoplasm progression [Fatal]
